FAERS Safety Report 8193288-5 (Version None)
Quarter: 2012Q1

REPORT INFORMATION
  Report Type: 
  Country: None (occurrence: None)
  Receive Date: 20120308
  Receipt Date: 20120301
  Transmission Date: 20120608
  Serious: Yes (Hospitalization)
  Sender: FDA-Public Use
  Company Number: JP-JNJFOC-20120111959

PATIENT
  Sex: Male

DRUGS (8)
  1. LANSOPRAZOLE [Concomitant]
     Indication: ACUTE MYOCARDIAL INFARCTION
     Route: 048
     Dates: start: 20120114, end: 20120115
  2. LIVALO [Concomitant]
     Indication: ACUTE MYOCARDIAL INFARCTION
     Route: 048
     Dates: start: 20120114, end: 20120115
  3. CONIEL [Concomitant]
     Indication: ACUTE MYOCARDIAL INFARCTION
     Route: 048
     Dates: start: 20120114, end: 20120115
  4. ASPIRIN [Concomitant]
     Indication: ACUTE MYOCARDIAL INFARCTION
     Route: 048
     Dates: start: 20120114, end: 20120115
  5. DORIPENEM MONOHYDRATE [Suspect]
     Indication: SEPSIS
     Route: 041
     Dates: start: 20120115, end: 20120116
  6. PLAVIX [Concomitant]
     Indication: ACUTE MYOCARDIAL INFARCTION
     Route: 048
     Dates: start: 20120114, end: 20120115
  7. PERINDOPRIL ERBUMINE [Concomitant]
     Indication: ACUTE MYOCARDIAL INFARCTION
     Route: 048
     Dates: start: 20120116, end: 20120117
  8. NICHISTATE [Concomitant]
     Indication: ACUTE MYOCARDIAL INFARCTION
     Route: 048
     Dates: start: 20120116, end: 20120117

REACTIONS (2)
  - URTICARIA [None]
  - METABOLIC ACIDOSIS [None]
